FAERS Safety Report 6697260-3 (Version None)
Quarter: 2010Q2

REPORT INFORMATION
  Report Type: 
  Country: None (occurrence: None)
  Receive Date: 20100426
  Receipt Date: 20100414
  Transmission Date: 20101027
  Serious: Yes (Hospitalization, Other)
  Sender: FDA-Public Use
  Company Number: US-PFIZER INC-2010047204

PATIENT
  Sex: Male
  Weight: 81.587 kg

DRUGS (8)
  1. DILANTIN-125 [Suspect]
     Indication: SUICIDE ATTEMPT
     Dosage: UNK,
     Route: 048
     Dates: start: 20100315, end: 20100315
  2. FENTANYL [Suspect]
     Indication: SUICIDE ATTEMPT
     Dosage: 75 UG, UNK
     Route: 048
     Dates: start: 20100315, end: 20100315
  3. FENTANYL [Suspect]
     Dosage: 25 UG, UNK
     Route: 048
     Dates: start: 20100315, end: 20100315
  4. FENTANYL [Suspect]
     Dosage: 75 UG, UNK
     Route: 042
     Dates: start: 20100315, end: 20100315
  5. FENTANYL [Suspect]
     Dosage: 25 UG, UNK
     Route: 042
     Dates: start: 20100315, end: 20100315
  6. RITALIN [Suspect]
     Indication: SUICIDE ATTEMPT
     Dosage: UNK, EST. 0600
     Route: 048
     Dates: start: 20100315, end: 20100315
  7. ADDERALL 30 [Suspect]
     Indication: SUICIDE ATTEMPT
     Dosage: UNK, EST. 0600
     Route: 048
     Dates: start: 20100315, end: 20100315
  8. PERCOCET [Suspect]
     Indication: SUICIDE ATTEMPT
     Dosage: UNK
     Route: 048
     Dates: start: 20100315, end: 20100315

REACTIONS (7)
  - CONVULSION [None]
  - IMPRISONMENT [None]
  - INTENTIONAL DRUG MISUSE [None]
  - LOSS OF CONSCIOUSNESS [None]
  - POISONING [None]
  - RESPIRATORY DEPRESSION [None]
  - SUICIDE ATTEMPT [None]
